FAERS Safety Report 16796216 (Version 1)
Quarter: 2019Q3

REPORT INFORMATION
  Report Type: Spontaneous
  Country: US (occurrence: US)
  Receive Date: 20190720
  Receipt Date: 20190720
  Transmission Date: 20191005
  Serious: Yes (Disabling, Other)
  Sender: FDA-Public Use
  Company Number: None

PATIENT
  Age: 62 Year
  Sex: Male
  Weight: 132 kg

DRUGS (16)
  1. SPIRIVA RESPINAT [Concomitant]
  2. EQUATE EYE ALLERGY RELIEF DROPS [Suspect]
     Active Substance: NAPHAZOLINE HYDROCHLORIDE\PHENIRAMINE MALEATE
     Indication: DRY EYE
     Dosage: 1 OR 2 EYE DROPS UP TO 4 TIMES DAILY
     Route: 047
     Dates: start: 20170617, end: 20190704
  3. JANUMET XR [Concomitant]
     Active Substance: METFORMIN HYDROCHLORIDE\SITAGLIPTIN PHOSPHATE
  4. AMLODIPINE [Concomitant]
     Active Substance: AMLODIPINE BESYLATE
  5. MULTIVITAMIN [Concomitant]
     Active Substance: VITAMINS
  6. IRBESARTAN. [Concomitant]
     Active Substance: IRBESARTAN
  7. XOPENX NEBULIZER [Concomitant]
  8. RANITIDINE. [Concomitant]
     Active Substance: RANITIDINE
  9. ASPIRIN. [Concomitant]
     Active Substance: ASPIRIN
  10. EQUATE COMFORT [Suspect]
     Active Substance: CARBOXYMETHYLCELLULOSE SODIUM\HYPROMELLOSES
  11. GEMFIBROZIL. [Concomitant]
     Active Substance: GEMFIBROZIL
  12. EQUATE EYE ALLERGY RELIEF DROPS [Suspect]
     Active Substance: NAPHAZOLINE HYDROCHLORIDE\PHENIRAMINE MALEATE
     Indication: MULTIPLE ALLERGIES
     Dosage: 1 OR 2 EYE DROPS UP TO 4 TIMES DAILY
     Route: 047
     Dates: start: 20170617, end: 20190704
  13. PROAIR HFA [Concomitant]
     Active Substance: ALBUTEROL SULFATE
  14. OMEPRAZOLE. [Concomitant]
     Active Substance: OMEPRAZOLE
  15. XIGDUO XR [Concomitant]
     Active Substance: DAPAGLIFLOZIN PROPANEDIOL\METFORMIN HYDROCHLORIDE
  16. FLUTICASONE PROPIONATE. [Concomitant]
     Active Substance: FLUTICASONE PROPIONATE

REACTIONS (9)
  - Eye infection [None]
  - Vertigo [None]
  - Impaired work ability [None]
  - Headache [None]
  - Balance disorder [None]
  - Fatigue [None]
  - Photosensitivity reaction [None]
  - Recalled product administered [None]
  - Vision blurred [None]

NARRATIVE: CASE EVENT DATE: 20190623
